FAERS Safety Report 10500984 (Version 2)
Quarter: 2014Q4

REPORT INFORMATION
  Report Type: Spontaneous
  Country: ES (occurrence: ES)
  Receive Date: 20141007
  Receipt Date: 20141010
  Transmission Date: 20150528
  Serious: Yes (Other)
  Sender: FDA-Public Use
  Company Number: ES-AMGEN-ESPSP2014076355

PATIENT
  Age: 67 Year
  Sex: Female

DRUGS (2)
  1. OSVICAL D [Concomitant]
     Dosage: UNK UNK,1 SACHET QHS
  2. PROLIA [Suspect]
     Active Substance: DENOSUMAB
     Indication: OSTEOPOROSIS
     Dosage: 60 MG, UNK
     Route: 065

REACTIONS (1)
  - Large intestinal ulcer [Unknown]
